FAERS Safety Report 16070123 (Version 1)
Quarter: 2019Q1

REPORT INFORMATION
  Report Type: Spontaneous
  Country: DE (occurrence: DE)
  Receive Date: 20190314
  Receipt Date: 20190314
  Transmission Date: 20190418
  Serious: Yes (Other)
  Sender: FDA-Public Use
  Company Number: DE-ACCORD-112047

PATIENT
  Sex: Male

DRUGS (1)
  1. OXALIPLATIN ACCORD [Suspect]
     Active Substance: OXALIPLATIN
     Indication: PRODUCT USED FOR UNKNOWN INDICATION
     Dosage: 500 ML IN 5% GLUCOSE
     Route: 042

REACTIONS (4)
  - Diabetic metabolic decompensation [Unknown]
  - Nausea [Unknown]
  - Thirst [Unknown]
  - Somnolence [Unknown]
